FAERS Safety Report 10015361 (Version 1)
Quarter: 2014Q1

REPORT INFORMATION
  Report Type: Spontaneous
  Country: US (occurrence: US)
  Receive Date: 20140317
  Receipt Date: 20140317
  Transmission Date: 20141002
  Serious: No
  Sender: FDA-Public Use
  Company Number: US-PFIZER INC-2014076619

PATIENT
  Age: 63 Year
  Sex: Female
  Weight: 65.3 kg

DRUGS (4)
  1. LYRICA [Suspect]
     Indication: MYELITIS TRANSVERSE
     Dosage: 50 MG, 1X/DAY
     Dates: start: 201403
  2. LYRICA [Suspect]
     Dosage: 50 MG, 2X/DAY
  3. LYRICA [Suspect]
     Dosage: 50 MG, 3X/DAY
  4. LYRICA [Suspect]
     Dosage: UNK

REACTIONS (1)
  - Somnolence [Unknown]
